FAERS Safety Report 5603186-6 (Version None)
Quarter: 2008Q1

REPORT INFORMATION
  Report Type: 
  Country: None (occurrence: None)
  Receive Date: 20080125
  Receipt Date: 20080115
  Transmission Date: 20080703
  Serious: Yes (Life-Threatening)
  Sender: FDA-Public Use
  Company Number: DE-PFIZER INC-2008005561

PATIENT
  Sex: Female

DRUGS (12)
  1. CLINDAMYCIN HCL [Suspect]
     Indication: INFECTION
     Route: 048
     Dates: start: 20050420, end: 20050504
  2. BELOC-ZOC COMP [Suspect]
     Route: 048
  3. TAVEGIL [Suspect]
     Indication: HYPERSENSITIVITY
     Dosage: FREQ:DAILY
     Route: 048
     Dates: start: 20050420, end: 20050504
  4. XUSAL [Suspect]
     Indication: HYPERSENSITIVITY
     Dates: start: 20050420, end: 20050504
  5. CIPROFLOXACIN [Suspect]
     Indication: INFECTION
     Route: 048
     Dates: start: 20050420, end: 20050504
  6. XANEF [Suspect]
     Indication: HYPERTENSION
     Route: 048
     Dates: start: 20050420, end: 20050504
  7. PANTOZOL [Suspect]
     Indication: PROPHYLAXIS
     Route: 048
     Dates: start: 20050420, end: 20050504
  8. EUTHYROX [Suspect]
     Route: 048
  9. ENABETA [Suspect]
     Route: 048
  10. KALINOR [Suspect]
     Indication: HYPOKALAEMIA
     Route: 048
     Dates: start: 20050420, end: 20050504
  11. DICLAC [Concomitant]
     Route: 048
     Dates: start: 20050401, end: 20050420
  12. TRAMADOL HCL [Concomitant]
     Indication: PAIN
     Route: 058
     Dates: start: 20050420, end: 20050420

REACTIONS (1)
  - TOXIC EPIDERMAL NECROLYSIS [None]
